FAERS Safety Report 13721621 (Version 1)
Quarter: 2017Q3

REPORT INFORMATION
  Report Type: Spontaneous
  Country: FR (occurrence: FR)
  Receive Date: 20170706
  Receipt Date: 20170706
  Transmission Date: 20171127
  Serious: Yes (Hospitalization)
  Sender: FDA-Public Use
  Company Number: FR-B.I. PHARMACEUTICALS,INC./RIDGEFIELD-2017-BI-036762

PATIENT
  Age: 82 Year
  Sex: Male

DRUGS (2)
  1. RIFINAH [Suspect]
     Active Substance: ISONIAZID\RIFAMPIN
     Indication: TUBERCULOSIS
     Dosage: 2 DOSAGE FORMS
     Route: 048
     Dates: start: 20170315, end: 20170526
  2. GILOTRIF [Suspect]
     Active Substance: AFATINIB
     Indication: LUNG ADENOCARCINOMA
     Route: 048
     Dates: start: 20170131, end: 20170526

REACTIONS (2)
  - Jaundice [Recovering/Resolving]
  - Bilirubin conjugated increased [Recovering/Resolving]

NARRATIVE: CASE EVENT DATE: 20170519
